FAERS Safety Report 6824362-0 (Version None)
Quarter: 2010Q3

REPORT INFORMATION
  Report Type: 
  Country: None (occurrence: None)
  Receive Date: 20100708
  Receipt Date: 20061027
  Transmission Date: 20110219
  Serious: No
  Sender: FDA-Public Use
  Company Number: US-PFIZER INC-2006128523

PATIENT
  Sex: Male
  Weight: 133.81 kg

DRUGS (9)
  1. CHANTIX [Suspect]
     Indication: SMOKING CESSATION THERAPY
     Dates: start: 20061001
  2. INDERAL [Concomitant]
  3. DESYREL [Concomitant]
  4. XANAX [Concomitant]
  5. LAMICTAL [Concomitant]
  6. PROTONIX [Concomitant]
  7. BUMEX [Concomitant]
  8. RANITIDINE [Concomitant]
  9. ALL OTHER THERAPEUTIC PRODUCTS [Concomitant]

REACTIONS (3)
  - CLUMSINESS [None]
  - PRURITUS [None]
  - RASH [None]
